FAERS Safety Report 20387794 (Version 1)
Quarter: 2022Q1

REPORT INFORMATION
  Report Type: Spontaneous
  Country: US (occurrence: US)
  Receive Date: 20220127
  Receipt Date: 20220127
  Transmission Date: 20220423
  Serious: No
  Sender: FDA-Public Use
  Company Number: US-AUROBINDO-AUR-APL-2021-054253

PATIENT
  Age: 50 Year
  Sex: Female
  Weight: 61.235 kg

DRUGS (1)
  1. OLOPATADINE HYDROCHLORIDE [Suspect]
     Active Substance: OLOPATADINE HYDROCHLORIDE
     Indication: Seasonal allergy
     Dosage: 1 DROP, ONCE A DAY (PUT ONE DROP IN EACH EYE PER DAY)
     Route: 047
     Dates: start: 2021, end: 2021

REACTIONS (3)
  - Eye pain [Recovered/Resolved]
  - Feeling abnormal [Recovered/Resolved]
  - Product quality issue [Unknown]

NARRATIVE: CASE EVENT DATE: 20211127
